FAERS Safety Report 12154883 (Version 3)
Quarter: 2016Q1

REPORT INFORMATION
  Report Type: Spontaneous
  Country: JP (occurrence: JP)
  Receive Date: 20160307
  Receipt Date: 20160323
  Transmission Date: 20160526
  Serious: Yes (Other)
  Sender: FDA-Public Use
  Company Number: PHJP2016JP004444

PATIENT
  Age: 10 Year
  Sex: Male

DRUGS (1)
  1. TEGRETOL [Suspect]
     Active Substance: CARBAMAZEPINE
     Indication: EPILEPSY
     Route: 048

REACTIONS (10)
  - Hyporesponsive to stimuli [Unknown]
  - Acquired epileptic aphasia [Unknown]
  - Dysgraphia [Unknown]
  - Communication disorder [Unknown]
  - Reading disorder [Unknown]
  - Poverty of speech [Unknown]
  - Cognitive disorder [Unknown]
  - Speech sound disorder [Unknown]
  - Slow speech [Unknown]
  - Aphasia [Recovering/Resolving]
